FAERS Safety Report 12654374 (Version 2)
Quarter: 2016Q3

REPORT INFORMATION
  Report Type: Spontaneous
  Country: US (occurrence: US)
  Receive Date: 20160816
  Receipt Date: 20160824
  Transmission Date: 20161109
  Serious: Yes (Hospitalization, Other)
  Sender: FDA-Public Use
  Company Number: US-JNJFOC-20160806922

PATIENT
  Age: 74 Year
  Sex: Male

DRUGS (1)
  1. XARELTO [Suspect]
     Active Substance: RIVAROXABAN
     Indication: PRODUCT USED FOR UNKNOWN INDICATION
     Route: 048
     Dates: start: 2015

REACTIONS (5)
  - Atrial fibrillation [Unknown]
  - Transfusion [Recovered/Resolved]
  - Postoperative wound infection [Recovered/Resolved]
  - Ageusia [Unknown]
  - Anosmia [Unknown]

NARRATIVE: CASE EVENT DATE: 2015
